FAERS Safety Report 12904223 (Version 1)
Quarter: 2016Q4

REPORT INFORMATION
  Report Type: Spontaneous
  Country: US (occurrence: US)
  Receive Date: 20161101
  Receipt Date: 20161101
  Transmission Date: 20170207
  Serious: No
  Sender: FDA-Public Use
  Company Number: None

PATIENT
  Age: 45 Year
  Sex: Female
  Weight: 52.16 kg

DRUGS (7)
  1. HUMIRA [Suspect]
     Active Substance: ADALIMUMAB
     Indication: RHEUMATOID ARTHRITIS
     Route: 058
     Dates: start: 20160811
  2. EPIPEN [Concomitant]
     Active Substance: EPINEPHRINE
  3. FOLIC ACID. [Suspect]
     Active Substance: FOLIC ACID
  4. VITAMIN C [Concomitant]
     Active Substance: ASCORBIC ACID
  5. CALCIUM [Concomitant]
     Active Substance: CALCIUM
  6. FISH OIL [Concomitant]
     Active Substance: FISH OIL
  7. METHOTREXATE. [Concomitant]
     Active Substance: METHOTREXATE

REACTIONS (5)
  - Injection site mass [None]
  - Therapy change [None]
  - Injection site pruritus [None]
  - Injection site warmth [None]
  - Injection site discolouration [None]

NARRATIVE: CASE EVENT DATE: 20160811
